FAERS Safety Report 5649909-1 (Version None)
Quarter: 2008Q1

REPORT INFORMATION
  Report Type: 
  Country: None (occurrence: None)
  Receive Date: 20080131
  Receipt Date: 20071019
  Transmission Date: 20080703
  Serious: No
  Sender: FDA-Public Use
  Company Number: 2006PV026014

PATIENT
  Age: 82 Year
  Sex: Female
  Weight: 79.4 kg

DRUGS (14)
  1. EXENATIDE(EXENATIDE) PEN,DISPOSABLE [Suspect]
     Indication: TYPE 2 DIABETES MELLITUS
     Dosage: SEE IMAGE
     Route: 058
     Dates: start: 20050101, end: 20050101
  2. EXENATIDE(EXENATIDE) PEN,DISPOSABLE [Suspect]
     Indication: TYPE 2 DIABETES MELLITUS
     Dosage: SEE IMAGE
     Route: 058
     Dates: start: 20060101, end: 20060101
  3. EXENATIDE(EXENATIDE) PEN,DISPOSABLE [Suspect]
     Indication: TYPE 2 DIABETES MELLITUS
     Dosage: SEE IMAGE
     Route: 058
     Dates: start: 20050101
  4. EXENATIDE(EXENATIDE) PEN,DISPOSABLE [Suspect]
     Indication: TYPE 2 DIABETES MELLITUS
     Dosage: SEE IMAGE
     Route: 058
     Dates: start: 20060101
  5. EXENATIDE(EXENATIDE) PEN,DISPOSABLE [Suspect]
     Indication: TYPE 2 DIABETES MELLITUS
     Dosage: SEE IMAGE
     Route: 058
     Dates: start: 20071010
  6. EXENATIDE(EXENATIDE) PEN,DISPOSABLE [Suspect]
     Route: 058
  7. GLUCOPHAGE [Concomitant]
  8. PRILOSEC [Concomitant]
  9. PREMARIN [Concomitant]
  10. LIPITOR [Concomitant]
  11. TRICOR [Concomitant]
  12. ZETIA [Concomitant]
  13. DIOVAN (HYDROCHLOROTHIAZIDE, VALSARTAN) [Concomitant]
  14. SANCTURA [Concomitant]

REACTIONS (1)
  - WEIGHT DECREASED [None]
